FAERS Safety Report 10081597 (Version 1)
Quarter: 2014Q2

REPORT INFORMATION
  Report Type: Spontaneous
  Country: US (occurrence: US)
  Receive Date: 20140416
  Receipt Date: 20140416
  Transmission Date: 20141212
  Serious: Yes (Other)
  Sender: FDA-Public Use
  Company Number: US-PFIZER INC-2014103920

PATIENT
  Age: 52 Year
  Sex: Female
  Weight: 58.96 kg

DRUGS (3)
  1. EXEMESTANE [Suspect]
     Indication: BREAST CANCER FEMALE
     Dosage: UNK
  2. ARIMIDEX [Suspect]
     Indication: BREAST CANCER FEMALE
     Dosage: UNK
  3. FEMARA [Suspect]
     Indication: BREAST CANCER FEMALE
     Dosage: UNK

REACTIONS (2)
  - Hypertension [Unknown]
  - Drug intolerance [Unknown]
